FAERS Safety Report 7276165-3 (Version None)
Quarter: 2011Q1

REPORT INFORMATION
  Report Type: 
  Country: None (occurrence: None)
  Receive Date: 20110204
  Receipt Date: 20110125
  Transmission Date: 20110831
  Serious: Yes (Hospitalization)
  Sender: FDA-Public Use
  Company Number: PHHY2010RU87918

PATIENT
  Sex: Male

DRUGS (6)
  1. ATORIS [Concomitant]
  2. MICARDIS [Concomitant]
     Dosage: 40 MG, UNK
  3. ASPIRIN [Concomitant]
  4. EXFORGE [Suspect]
     Indication: HYPERTENSION
     Dosage: 160/10 MG
     Dates: start: 20101120
  5. ENAP [Concomitant]
  6. AMLODIPINE [Concomitant]
     Dosage: 5 MG, UNK

REACTIONS (11)
  - ASTHENIA [None]
  - SPEECH DISORDER [None]
  - GAIT DISTURBANCE [None]
  - HEMIPARESIS [None]
  - FEELING ABNORMAL [None]
  - ARTERIOSCLEROSIS [None]
  - VIITH NERVE PARALYSIS [None]
  - APHASIA [None]
  - THROMBOTIC STROKE [None]
  - HYPOAESTHESIA [None]
  - BLOOD PRESSURE INADEQUATELY CONTROLLED [None]
